FAERS Safety Report 9250371 (Version 3)
Quarter: 2013Q2

REPORT INFORMATION
  Report Type: Report from Study
  Country: NL (occurrence: NL)
  Receive Date: 20130424
  Receipt Date: 20130529
  Transmission Date: 20140414
  Serious: Yes (Life-Threatening, Other)
  Sender: FDA-Public Use
  Company Number: NL-GENZYME-CLOF-1002595

PATIENT
  Age: 62 Year
  Sex: Male
  Weight: 62 kg

DRUGS (6)
  1. EVOLTRA [Suspect]
     Indication: ACUTE MYELOID LEUKAEMIA
     Dosage: 17 MG, UNK
     Route: 042
     Dates: start: 20130318, end: 20130322
  2. CYTARABINE [Suspect]
     Indication: ACUTE MYELOID LEUKAEMIA
     Dosage: 2X1700 MG
     Route: 042
     Dates: start: 20130318
  3. AMSACRINE [Suspect]
     Indication: ACUTE MYELOID LEUKAEMIA
     Dosage: 200 MG, UNK
     Route: 042
     Dates: start: 20130321
  4. MORPHINE [Suspect]
     Indication: PAIN
     Dosage: 2 MG/HR
     Route: 042
     Dates: start: 20130331
  5. MORPHINE [Suspect]
     Dosage: 1 MG/HR
     Route: 042
     Dates: start: 20130404
  6. MORPHINE [Suspect]
     Dosage: 2.5 MG NECCESARY
     Route: 058
     Dates: start: 20130409

REACTIONS (4)
  - Caecitis [Unknown]
  - Multi-organ failure [Unknown]
  - Bronchopulmonary aspergillosis [Unknown]
  - Respiratory failure [Recovered/Resolved]
